FAERS Safety Report 12709889 (Version 1)
Quarter: 2016Q3

REPORT INFORMATION
  Report Type: Spontaneous
  Country: HU (occurrence: HU)
  Receive Date: 20160901
  Receipt Date: 20160901
  Transmission Date: 20161109
  Serious: Yes (Other)
  Sender: FDA-Public Use
  Company Number: HU-AMGEN-HUNSP2016113503

PATIENT
  Age: 49 Year
  Sex: Female
  Weight: 75 kg

DRUGS (5)
  1. ESOMEPRAZOL SANDOZ [Concomitant]
     Indication: GASTRIC DISORDER
     Dosage: 40 MG, 1 IN THE MORNING, STARTED 5 YEARS AGO
  2. ENBREL [Suspect]
     Active Substance: ETANERCEPT
     Indication: ANKYLOSING SPONDYLITIS
     Dosage: INJECTION, 50 MG WEEKLY 1X1 (TUESDAY)
     Route: 065
     Dates: start: 201604
  3. ARCOXIA [Concomitant]
     Active Substance: ETORICOXIB
     Indication: ANKYLOSING SPONDYLITIS
     Dosage: 60 MG, 1 IN THE MORNING, STARTED 4 YEARS AGO
  4. TANYDON [Concomitant]
     Indication: HYPERTENSION
     Dosage: 1/2 IN THE MORNING FROM THE 80 MG FILM-COATED TABLET, STARTED 5 YEARS AGO
  5. BISOPROLOL SANDOZ [Concomitant]
     Active Substance: BISOPROLOL
     Indication: HYPERTENSION
     Dosage: 5 MG, 1 IN THE MORNING, STARTED 2 YEARS AGO

REACTIONS (3)
  - Condition aggravated [Not Recovered/Not Resolved]
  - Ankylosing spondylitis [Not Recovered/Not Resolved]
  - Drug ineffective [Not Recovered/Not Resolved]

NARRATIVE: CASE EVENT DATE: 2016
